FAERS Safety Report 5945568-9 (Version None)
Quarter: 2008Q4

REPORT INFORMATION
  Report Type: 
  Country: None (occurrence: None)
  Receive Date: 20081107
  Receipt Date: 20081031
  Transmission Date: 20090506
  Serious: No
  Sender: FDA-Public Use
  Company Number: US-B.I. PHARMACEUTICALS,INC./RIDGEFIELD-2008-BP-16556BP

PATIENT
  Age: 71 Year
  Sex: Male
  Weight: 104 kg

DRUGS (9)
  1. FLOMAX [Suspect]
     Indication: PROSTATOMEGALY
  2. LUNESTA [Suspect]
     Indication: INSOMNIA
     Dosage: 3MG
     Dates: start: 20080101
  3. LUNESTA [Suspect]
     Dosage: 2MG
     Dates: start: 20080101, end: 20080101
  4. LUNESTA [Suspect]
     Dosage: 1MG
     Dates: start: 20080101, end: 20080101
  5. PROSCAR [Concomitant]
  6. CITALOPRAM HYDROBROMIDE [Concomitant]
  7. MELATONIN [Concomitant]
  8. CLONAZEPAM [Concomitant]
  9. REMERON [Concomitant]
     Dates: end: 20080101

REACTIONS (9)
  - ABNORMAL DREAMS [None]
  - CONFUSIONAL STATE [None]
  - DIZZINESS [None]
  - HEAD INJURY [None]
  - INCREASED APPETITE [None]
  - MIDDLE INSOMNIA [None]
  - POOR QUALITY SLEEP [None]
  - SYNCOPE [None]
  - WEIGHT INCREASED [None]
